FAERS Safety Report 6494580-2 (Version None)
Quarter: 2009Q4

REPORT INFORMATION
  Report Type: 
  Country: None (occurrence: None)
  Receive Date: 20091214
  Receipt Date: 20090314
  Transmission Date: 20100525
  Serious: No
  Sender: FDA-Public Use
  Company Number: US-BRISTOL-MYERS SQUIBB COMPANY-14531636

PATIENT
  Age: 61 Year
  Sex: Female

DRUGS (2)
  1. ABILIFY [Suspect]
     Indication: BIPOLAR I DISORDER
     Dosage: DECREASED TO 20MG, THEN TO 15MG.
     Dates: start: 20081101
  2. DEPAKOTE [Suspect]
     Dosage: DECREASED TO 1750MG.

REACTIONS (1)
  - OEDEMA PERIPHERAL [None]
